FAERS Safety Report 9220709 (Version 1)
Quarter: 2013Q1

REPORT INFORMATION
  Report Type: Spontaneous
  Country: US (occurrence: None)
  Receive Date: 20120831
  Receipt Date: 20120831
  Transmission Date: 20140127
  Serious: No
  Sender: FDA-Public Use
  Company Number: 1000030410

PATIENT
  Age: 59 Year
  Sex: Female

DRUGS (7)
  1. DALIRESP [Suspect]
     Indication: CHRONIC OBSTRUCTIVE PULMONARY DISEASE
     Route: 048
     Dates: start: 20120419, end: 20120504
  2. SPIRIVA (TIOTROPIUM BROMIDE) (TIOTROPIUM BROMIDE) [Concomitant]
  3. ADVAIR (SERETIDE) (SERETIDE) [Concomitant]
  4. PREDNISONE (PREDNISONE) (PREDNISONE) [Concomitant]
  5. CARDIZEM (DILTIAZEM) (DILTIAZEM) [Concomitant]
  6. LISINOPRIL (LISINOPRIL (LISINOPRIL) [Concomitant]
  7. FOSAMAX (ALENDRONATE SODIUM) (ALENDRONATE SODIUM) [Concomitant]

REACTIONS (8)
  - Weight decreased [None]
  - Nausea [None]
  - Decreased appetite [None]
  - Dyspepsia [None]
  - Back pain [None]
  - Headache [None]
  - Diarrhoea [None]
  - Insomnia [None]
